FAERS Safety Report 22157648 (Version 1)
Quarter: 2023Q1

REPORT INFORMATION
  Report Type: Spontaneous
  Country: None (occurrence: DE)
  Receive Date: 20230330
  Receipt Date: 20230330
  Transmission Date: 20230418
  Serious: Yes (Other)
  Sender: FDA-Public Use
  Company Number: DE-Ascend Therapeutics US, LLC-2139722

PATIENT
  Age: 56 Year
  Sex: Female
  Weight: 66 kg

DRUGS (4)
  1. ESTROGEL [Suspect]
     Active Substance: ESTRADIOL
     Indication: Product used for unknown indication
     Route: 065
  2. ESTROGEL [Suspect]
     Active Substance: ESTRADIOL
     Route: 065
  3. PROGESTERONE [Suspect]
     Active Substance: PROGESTERONE
     Route: 065
  4. PROGESTERONE [Suspect]
     Active Substance: PROGESTERONE
     Route: 065

REACTIONS (12)
  - Coronary artery stenosis [Unknown]
  - Mucosal disorder [Unknown]
  - Illness [Unknown]
  - Mood swings [Unknown]
  - Mood altered [Unknown]
  - Night sweats [Unknown]
  - Hot flush [Unknown]
  - Hair colour changes [Unknown]
  - Food craving [Unknown]
  - Hypotension [Unknown]
  - Hypertension [Recovered/Resolved]
  - Weight increased [Unknown]

NARRATIVE: CASE EVENT DATE: 20230101
